FAERS Safety Report 24825311 (Version 1)
Quarter: 2025Q1

REPORT INFORMATION
  Report Type: Spontaneous
  Country: US (occurrence: US)
  Receive Date: 20250109
  Receipt Date: 20250109
  Transmission Date: 20250408
  Serious: No
  Sender: BAYER HEALTHCARE LLC
  Company Number: US-BAYER-2025A003760

PATIENT
  Age: 40 Year
  Sex: Female

DRUGS (2)
  1. ALEVE [Suspect]
     Active Substance: NAPROXEN SODIUM
     Indication: Pain
     Dosage: 2 DF, BID, TOOK 2 AT 8 AM AND I TOOK 2 AT 11:00
     Route: 048
     Dates: start: 20250108, end: 20250108
  2. ALEVE [Suspect]
     Active Substance: NAPROXEN SODIUM
     Indication: Migraine

REACTIONS (2)
  - Incorrect dose administered [Unknown]
  - Drug ineffective for unapproved indication [Unknown]

NARRATIVE: CASE EVENT DATE: 20250108
